FAERS Safety Report 8804284 (Version 7)
Quarter: 2013Q1

REPORT INFORMATION
  Report Type: Report from Study
  Country: US (occurrence: US)
  Receive Date: 20120924
  Receipt Date: 20130311
  Transmission Date: 20140127
  Serious: Yes (Hospitalization)
  Sender: FDA-Public Use
  Company Number: US-JNJFOC-20120908252

PATIENT
  Age: 15 Year
  Sex: Male
  Weight: 50.6 kg

DRUGS (7)
  1. REMICADE [Suspect]
     Indication: CROHN^S DISEASE
     Route: 042
     Dates: start: 20101210
  2. REMICADE [Suspect]
     Indication: CROHN^S DISEASE
     Route: 042
     Dates: start: 20101222
  3. CIPROFLOXACIN [Concomitant]
  4. ANTIHISTAMINES [Concomitant]
  5. TYLENOL [Concomitant]
  6. NORCO [Concomitant]
  7. ANTIBIOTICS FOR IBD [Concomitant]

REACTIONS (5)
  - Urinary tract infection [Recovered/Resolved]
  - Myositis [Recovered/Resolved]
  - Abdominal mass [Recovered/Resolved]
  - Abscess [Recovered/Resolved]
  - Crohn^s disease [Recovered/Resolved]
